FAERS Safety Report 23427022 (Version 1)
Quarter: 2024Q1

REPORT INFORMATION
  Report Type: Spontaneous
  Country: US (occurrence: None)
  Receive Date: 20240119
  Receipt Date: 20240119
  Transmission Date: 20240410
  Serious: Yes (Hospitalization)
  Sender: FDA-Public Use
  Company Number: None

PATIENT
  Age: 59 Year
  Sex: Female

DRUGS (1)
  1. IBRANCE [Suspect]
     Active Substance: PALBOCICLIB
     Indication: Breast cancer female
     Dosage: 125MG QD ORAL
     Route: 048

REACTIONS (5)
  - Influenza [None]
  - Therapy interrupted [None]
  - Chills [None]
  - Retching [None]
  - Nausea [None]

NARRATIVE: CASE EVENT DATE: 20240117
